FAERS Safety Report 9499611 (Version 1)
Quarter: 2013Q1

REPORT INFORMATION
  Report Type: Spontaneous
  Country: US (occurrence: None)
  Receive Date: 20130107
  Receipt Date: 20130107
  Transmission Date: 20140127
  Serious: No
  Sender: FDA-Public Use
  Company Number: PHEH2012US022282

PATIENT
  Age: 63 Year
  Sex: Female

DRUGS (4)
  1. GILENYA (FINGOLIMOD) CAPSULE [Suspect]
     Indication: MULTIPLE SCLEROSIS
     Route: 048
     Dates: start: 20121107
  2. BACLOFEN (BACOFEN) [Concomitant]
  3. PROGESTERONE (PROGESTERONE) [Concomitant]
  4. ESTRADIOL (ESTRADIOL) (GEL) [Concomitant]

REACTIONS (2)
  - Palpitations [None]
  - Dizziness [None]
